FAERS Safety Report 5519418-9 (Version None)
Quarter: 2007Q4

REPORT INFORMATION
  Report Type: 
  Country: None (occurrence: None)
  Receive Date: 20071116
  Receipt Date: 20071107
  Transmission Date: 20080405
  Serious: Yes (Other)
  Sender: FDA-Public Use
  Company Number: PL-AMGEN-UK249973

PATIENT
  Sex: Female
  Weight: 66.7 kg

DRUGS (8)
  1. ARANESP [Suspect]
     Indication: RENAL FAILURE CHRONIC
     Route: 058
     Dates: start: 20070921
  2. FRAXIPARINE [Concomitant]
     Route: 058
     Dates: start: 20070914
  3. ACETYLSALICYLIC ACID SRT [Concomitant]
     Route: 048
     Dates: start: 20070914
  4. CALCIUM CARBONATE [Concomitant]
     Route: 048
     Dates: start: 20070914
  5. FOLIC ACID [Concomitant]
     Route: 048
     Dates: start: 20070914
  6. FERROUS SULFATE TAB [Concomitant]
     Route: 048
     Dates: start: 20070914
  7. ZINC SULFATE [Concomitant]
     Route: 048
     Dates: start: 20070914
  8. METHYLDOPA [Concomitant]
     Route: 048
     Dates: start: 20070925

REACTIONS (3)
  - HYPERTENSION [None]
  - NEPHROTIC SYNDROME [None]
  - RENAL FAILURE [None]
